FAERS Safety Report 16232338 (Version 3)
Quarter: 2019Q3

REPORT INFORMATION
  Report Type: Report from Study
  Country: US (occurrence: US)
  Receive Date: 20190424
  Receipt Date: 20190718
  Transmission Date: 20191004
  Serious: Yes (Other)
  Sender: FDA-Public Use
  Company Number: PHEH2019US017140

PATIENT
  Age: 66 Year
  Sex: Female

DRUGS (1)
  1. GILENYA [Suspect]
     Active Substance: FINGOLIMOD HYDROCHLORIDE
     Indication: PRODUCT USED FOR UNKNOWN INDICATION
     Route: 065
     Dates: start: 20111102

REACTIONS (7)
  - Secondary progressive multiple sclerosis [Unknown]
  - Fall [Recovered/Resolved]
  - Wound [Unknown]
  - Fall [Unknown]
  - Gait disturbance [Unknown]
  - Contusion [Unknown]
  - Dysphagia [Unknown]

NARRATIVE: CASE EVENT DATE: 20181201
